FAERS Safety Report 9915957 (Version 1)
Quarter: 2014Q1

REPORT INFORMATION
  Report Type: Spontaneous
  Country: US (occurrence: None)
  Receive Date: 20140219
  Receipt Date: 20140219
  Transmission Date: 20141002
  Serious: Yes (Other)
  Sender: FDA-Public Use
  Company Number: None

PATIENT
  Age: 35 Year
  Sex: Male
  Weight: 86.18 kg

DRUGS (1)
  1. MIRVASO [Suspect]
     Indication: ROSACEA
     Dosage: GEL TWICE DAILY APPLIED TO A SURFACE, USUALLY THE SKIN
     Dates: start: 20140130, end: 20140211

REACTIONS (5)
  - Rebound effect [None]
  - Rosacea [None]
  - Condition aggravated [None]
  - Application site burn [None]
  - Application site erythema [None]
